FAERS Safety Report 19680268 (Version 2)
Quarter: 2022Q1

REPORT INFORMATION
  Report Type: Spontaneous
  Country: CN (occurrence: CN)
  Receive Date: 20210810
  Receipt Date: 20220131
  Transmission Date: 20220423
  Serious: Yes (Other)
  Sender: FDA-Public Use
  Company Number: CN-PFIZER INC-202100970764

PATIENT
  Age: 35 Year
  Sex: Female
  Weight: 77 kg

DRUGS (4)
  1. HEMABATE [Suspect]
     Active Substance: CARBOPROST TROMETHAMINE
     Indication: Uterine atony
     Dosage: 250 UG, 1X/DAY
     Route: 030
     Dates: start: 20210705, end: 20210705
  2. MISOPROSTOL [Suspect]
     Active Substance: MISOPROSTOL
     Indication: Uterine atony
     Dosage: 0.4 MG, 1X/DAY
     Route: 048
     Dates: start: 20210705, end: 20210705
  3. DEXAMETHASONE [Concomitant]
     Active Substance: DEXAMETHASONE
     Indication: Hydrometra
     Dosage: 5 MG
     Route: 040
     Dates: start: 20210705, end: 20210705
  4. CALCIUM GLUCONATE [Concomitant]
     Active Substance: CALCIUM GLUCONATE
     Indication: Hydrometra
     Dosage: 10 ML
     Route: 040
     Dates: start: 20210705, end: 20210705

REACTIONS (1)
  - Abdominal pain upper [Recovered/Resolved]

NARRATIVE: CASE EVENT DATE: 20210705
